FAERS Safety Report 14221754 (Version 1)
Quarter: 2017Q4

REPORT INFORMATION
  Report Type: Report from Study
  Country: US (occurrence: US)
  Receive Date: 20171123
  Receipt Date: 20171123
  Transmission Date: 20180321
  Serious: No
  Sender: FDA-Public Use
  Company Number: PHEH2017US037699

PATIENT
  Age: 37 Year
  Sex: Female

DRUGS (2)
  1. GILENYA [Suspect]
     Active Substance: FINGOLIMOD HYDROCHLORIDE
     Indication: MULTIPLE SCLEROSIS
     Dosage: 0.5 MG, QD
     Route: 048
     Dates: start: 20120921
  2. VALIUM [Concomitant]
     Active Substance: DIAZEPAM
     Indication: ANXIETY
     Dosage: 1 DF, BID
     Route: 065

REACTIONS (6)
  - Peripheral swelling [Unknown]
  - Balance disorder [Unknown]
  - Eczema [Unknown]
  - Hypoaesthesia [Unknown]
  - Multiple sclerosis relapse [Recovered/Resolved with Sequelae]
  - Muscle spasms [Unknown]

NARRATIVE: CASE EVENT DATE: 20170921
